FAERS Safety Report 7027767-0 (Version None)
Quarter: 2010Q4

REPORT INFORMATION
  Report Type: 
  Country: None (occurrence: None)
  Receive Date: 20101004
  Receipt Date: 20101004
  Transmission Date: 20110411
  Serious: Yes (Other)
  Sender: FDA-Public Use
  Company Number: None

PATIENT
  Sex: Female
  Weight: 58.9676 kg

DRUGS (2)
  1. OXYCONTIN [Suspect]
     Indication: ARTHROPATHY
     Dosage: 60 MG 1 SXS DAY
     Dates: start: 20100920
  2. OXYCONTIN [Suspect]
     Indication: BACK DISORDER
     Dosage: 60 MG 1 SXS DAY
     Dates: start: 20100920

REACTIONS (5)
  - ABDOMINAL PAIN UPPER [None]
  - HEADACHE [None]
  - HYPERSOMNIA [None]
  - NO THERAPEUTIC RESPONSE [None]
  - PRODUCT FORMULATION ISSUE [None]
